FAERS Safety Report 6996671-6 (Version None)
Quarter: 2010Q3

REPORT INFORMATION
  Report Type: 
  Country: None (occurrence: None)
  Receive Date: 20100918
  Receipt Date: 20090501
  Transmission Date: 20110219
  Serious: No
  Sender: FDA-Public Use
  Company Number: US-WYE-H09185109

PATIENT
  Sex: Female

DRUGS (2)
  1. ALAVERT [Suspect]
     Indication: HYPERSENSITIVITY
     Route: 048
     Dates: start: 20090424
  2. LEXAPRO [Concomitant]

REACTIONS (2)
  - NAUSEA [None]
  - PANIC ATTACK [None]
